FAERS Safety Report 4875356-6 (Version None)
Quarter: 2006Q1

REPORT INFORMATION
  Report Type: 
  Country: None (occurrence: None)
  Receive Date: 20060109
  Receipt Date: 20051005
  Transmission Date: 20060701
  Serious: Yes (Other)
  Sender: FDA-Public Use
  Company Number: US-MERCK-0510USA03997

PATIENT
  Age: 70 Year
  Sex: Female
  Weight: 97 kg

DRUGS (9)
  1. VIOXX [Suspect]
     Indication: OSTEOARTHRITIS
     Route: 048
     Dates: start: 20021001, end: 20030117
  2. PRAVACHOL [Concomitant]
     Route: 065
  3. CARTIA (DILTIAZEM HYDROCHLORIDE) [Concomitant]
     Route: 065
  4. HYZAAR [Suspect]
     Route: 048
     Dates: start: 20000101
  5. SPIRONOLACTONE [Concomitant]
     Route: 065
     Dates: end: 20030117
  6. COMBIVENT [Concomitant]
     Route: 065
  7. FLOVENT [Concomitant]
     Route: 065
  8. FIBERCON [Concomitant]
     Route: 065
  9. LASIX [Concomitant]
     Route: 065

REACTIONS (16)
  - ARTHROPATHY [None]
  - BLOOD GLUCOSE INCREASED [None]
  - CHEST DISCOMFORT [None]
  - CORONARY ARTERY DISEASE [None]
  - DIABETES MELLITUS [None]
  - DIZZINESS [None]
  - DYSPNOEA EXERTIONAL [None]
  - INSOMNIA [None]
  - IRRITABLE BOWEL SYNDROME [None]
  - MYOCARDIAL INFARCTION [None]
  - PALPITATIONS [None]
  - RENAL FAILURE ACUTE [None]
  - SEASONAL ALLERGY [None]
  - STRESS INCONTINENCE [None]
  - URINARY TRACT INFECTION [None]
  - WEIGHT INCREASED [None]
